FAERS Safety Report 25833210 (Version 2)
Quarter: 2025Q4

REPORT INFORMATION
  Report Type: Spontaneous
  Country: US (occurrence: US)
  Receive Date: 20250922
  Receipt Date: 20251003
  Transmission Date: 20260117
  Serious: No
  Sender: VERTEX
  Company Number: US-VERTEX PHARMACEUTICALS-2025-015384

PATIENT
  Age: 57 Year
  Sex: Male

DRUGS (5)
  1. JOURNAVX [Suspect]
     Active Substance: SUZETRIGINE
     Indication: Pain
     Dosage: 100 MG LOADING DOSE
     Route: 048
     Dates: start: 20250915, end: 20250915
  2. JOURNAVX [Suspect]
     Active Substance: SUZETRIGINE
     Dosage: 1 TABLET (50 MG), BID MAINTENANCE DOSE
     Route: 048
     Dates: start: 20250915, end: 20250915
  3. OXYCODONE [Concomitant]
     Active Substance: OXYCODONE
     Indication: Pain
     Dosage: 5 MG (1 TABLET), 4-6 HRS PRN
     Route: 048
     Dates: start: 20250915
  4. ONDANSETRON [Concomitant]
     Active Substance: ONDANSETRON
     Indication: Nausea
     Dosage: 4 MG (1 TABLET) ODT, QID (Q6HRS) PRN
     Route: 048
     Dates: start: 20250915
  5. METHOCARBAMOL [Concomitant]
     Active Substance: METHOCARBAMOL
     Indication: Muscle spasms
     Dosage: 750 MG (1 TABLET), QID (Q6HRS) PRN
     Route: 048
     Dates: start: 20250915

REACTIONS (1)
  - Paraesthesia [Recovered/Resolved]

NARRATIVE: CASE EVENT DATE: 20250915
